FAERS Safety Report 9443604 (Version 2)
Quarter: 2013Q3

REPORT INFORMATION
  Report Type: Spontaneous
  Country: ES (occurrence: None)
  Receive Date: 20130802
  Receipt Date: 20130903
  Transmission Date: 20140515
  Serious: Yes (Other)
  Sender: FDA-Public Use
  Company Number: 2013-3096

PATIENT
  Age: 65 Year
  Sex: Female
  Weight: 49 kg

DRUGS (1)
  1. DYSPORT (BOTLINUM TOXIN TYPE A) (BOTULINUM TOXIN TYPE A) [Suspect]
     Indication: SKIN COSMETIC PROCEDURE
     Dosage: 50 UNITS ( 50 UNITS, 1 IN 1 CYCLE (S))
     Route: 058
     Dates: start: 20130612, end: 20130612

REACTIONS (8)
  - Neuromuscular toxicity [None]
  - Incorrect route of drug administration [None]
  - Eye pain [None]
  - Asthenia [None]
  - Malaise [None]
  - Migraine [None]
  - Personality disorder [None]
  - Derealisation [None]
